FAERS Safety Report 24602187 (Version 1)
Quarter: 2024Q4

REPORT INFORMATION
  Report Type: Report from Study
  Country: CN (occurrence: CN)
  Receive Date: 20241111
  Receipt Date: 20241111
  Transmission Date: 20250115
  Serious: Yes (Hospitalization, Other)
  Sender: JOHNSON AND JOHNSON
  Company Number: CN-JNJFOC-20241115522

PATIENT
  Age: 73 Year
  Sex: Male
  Weight: 81 kg

DRUGS (13)
  1. ZYTIGA [Suspect]
     Active Substance: ABIRATERONE ACETATE
     Indication: Hormone-refractory prostate cancer
     Route: 048
     Dates: start: 20191129
  2. PRUXELUTAMIDE [Suspect]
     Active Substance: PRUXELUTAMIDE
     Indication: Hormone-refractory prostate cancer
     Route: 048
     Dates: start: 20191129
  3. PREDNISONE ACETATE [Suspect]
     Active Substance: PREDNISONE ACETATE
     Indication: Hormone-refractory prostate cancer
     Route: 048
     Dates: start: 20191129
  4. BENAZEPRIL [Concomitant]
     Active Substance: BENAZEPRIL HYDROCHLORIDE
     Indication: Product used for unknown indication
     Route: 048
  5. UNSPECIFIED INGREDIENT [Concomitant]
     Active Substance: UNSPECIFIED INGREDIENT
     Dosage: 200 UNITS
     Route: 041
     Dates: start: 20200409, end: 20200414
  6. UNSPECIFIED INGREDIENT [Concomitant]
     Active Substance: UNSPECIFIED INGREDIENT
     Route: 041
     Dates: start: 20200409, end: 20200414
  7. LANSOPRAZOLE [Concomitant]
     Active Substance: LANSOPRAZOLE
     Indication: Prophylaxis
     Dates: start: 20190409, end: 20200414
  8. IBANDRONATE SODIUM [Concomitant]
     Active Substance: IBANDRONATE SODIUM
     Indication: Prophylaxis
     Route: 041
     Dates: start: 20200408, end: 20200408
  9. GOSERELIN ACETATE [Concomitant]
     Active Substance: GOSERELIN ACETATE
     Route: 058
     Dates: start: 201906, end: 20191117
  10. GOSERELIN ACETATE [Concomitant]
     Active Substance: GOSERELIN ACETATE
     Route: 058
     Dates: start: 20200414, end: 20200414
  11. LEUPROLIDE ACETATE [Concomitant]
     Active Substance: LEUPROLIDE ACETATE
     Dates: start: 20190430, end: 20190430
  12. BICALUTAMIDE [Concomitant]
     Active Substance: BICALUTAMIDE
     Dates: start: 20190426, end: 20191017
  13. ZOLEDRONIC ACID [Concomitant]
     Active Substance: ZOLEDRONIC ACID
     Indication: Prophylaxis
     Dates: start: 20190429, end: 20190429

REACTIONS (2)
  - Asthenia [Recovered/Resolved]
  - Renal impairment [Unknown]

NARRATIVE: CASE EVENT DATE: 20200407
